FAERS Safety Report 11760724 (Version 1)
Quarter: 2015Q4

REPORT INFORMATION
  Report Type: Spontaneous
  Country: JP (occurrence: JP)
  Receive Date: 20151120
  Receipt Date: 20151120
  Transmission Date: 20160304
  Serious: Yes (Other)
  Sender: FDA-Public Use
  Company Number: JP-BRISTOL-MYERS SQUIBB COMPANY-BMS-2015-079641

PATIENT

DRUGS (2)
  1. LIXIANA [Concomitant]
     Active Substance: EDOXABAN TOSILATE MONOHYDRATE
     Indication: THROMBOSIS PROPHYLAXIS
     Route: 065
  2. ELIQUIS [Suspect]
     Active Substance: APIXABAN
     Indication: PRODUCT USED FOR UNKNOWN INDICATION
     Route: 048

REACTIONS (1)
  - Femur fracture [Unknown]
